FAERS Safety Report 4378523-3 (Version None)
Quarter: 2004Q2

REPORT INFORMATION
  Report Type: 
  Country: None (occurrence: None)
  Receive Date: 20040609
  Receipt Date: 20040603
  Transmission Date: 20050107
  Serious: Yes (Hospitalization, Disabling)
  Sender: FDA-Public Use
  Company Number: HQ8498115NOV2001

PATIENT
  Age: 55 Year
  Sex: Male

DRUGS (10)
  1. DIMETAPP [Suspect]
     Indication: INFLUENZA
  2. ALKA-SELTZER PLUS COLD (ACETYLSALICYLIC  ACID/CHLORPHENAMINE MALEATE/P [Suspect]
     Indication: INFLUENZA
  3. COMETREX (CHLORPHENAMINE MALEATE/DEXTROMETHORPHAN HYDROBROMIDE/PARACET [Suspect]
     Indication: INFLUENZA
  4. CONTAC [Suspect]
     Indication: INFLUENZA
  5. DEXATRIM (CAFFEINE/PHENYLPROPANOLAMINE HYDROCHLORIDE, ) [Suspect]
  6. DRISTAN COLD MULTI-SYMPTOM FORMULA (ACETAMINOPHEN/CHLORPHENIRAMINE MAL [Suspect]
     Dosage: ORAL
     Route: 048
  7. ROBITUSSIN CF (GUAIFENESIN/DEXTROMETHORPHAN/PHENYLPROPANOLAMINE, SYRUP [Suspect]
     Indication: INFLUENZA
  8. SINE-OFF (ACETYLSALICYLIC ACID/CHLORPHENAMINE MALEATE/PHENYLPROPANOLAM [Suspect]
     Dosage: 3 TABLETS DAILY, ORAL
     Route: 048
  9. TAVIST- D (CLEMASTINE FUMARATE/PHENYLPROPANOLAMINE HYDROCHLORIED,) [Suspect]
     Indication: INFLUENZA
  10. TRIAMINIC SRT [Suspect]
     Indication: INFLUENZA

REACTIONS (4)
  - CEREBROVASCULAR ACCIDENT [None]
  - CONVULSION [None]
  - DEPRESSION [None]
  - HYPERTENSION [None]
